FAERS Safety Report 12340137 (Version 1)
Quarter: 2016Q2

REPORT INFORMATION
  Report Type: Report from Study
  Country: BR (occurrence: BR)
  Receive Date: 20160506
  Receipt Date: 20160506
  Transmission Date: 20160815
  Serious: Yes (Death, Other)
  Sender: FDA-Public Use
  Company Number: BR-BRISTOL-MYERS SQUIBB COMPANY-BMS-2016-016332

PATIENT
  Sex: Female

DRUGS (1)
  1. ABATACEPT [Suspect]
     Active Substance: ABATACEPT
     Indication: RHEUMATOID ARTHRITIS
     Dosage: 3 VIALS, QMO
     Route: 042

REACTIONS (7)
  - Pain [Unknown]
  - Malaise [Unknown]
  - Urinary tract infection [Unknown]
  - Bedridden [Unknown]
  - Myocardial infarction [Fatal]
  - Asthenia [Unknown]
  - Mobility decreased [Unknown]
